FAERS Safety Report 26215440 (Version 1)
Quarter: 2025Q4

REPORT INFORMATION
  Report Type: Report from Study
  Country: US (occurrence: US)
  Receive Date: 20251231
  Receipt Date: 20251231
  Transmission Date: 20260118
  Serious: Yes (Other)
  Sender: ALEXION PHARMACEUTICALS
  Company Number: US-AstraZeneca-CH-01022093A

PATIENT
  Age: 65 Year
  Sex: Female

DRUGS (1)
  1. ACALABRUTINIB [Suspect]
     Active Substance: ACALABRUTINIB
     Indication: Lung neoplasm malignant
     Dosage: 100 MILLIGRAM, BID
     Route: 061
     Dates: start: 20211016

REACTIONS (3)
  - Pneumonia [Unknown]
  - Immune system disorder [Unknown]
  - Off label use [Unknown]
